FAERS Safety Report 23079203 (Version 2)
Quarter: 2024Q3

REPORT INFORMATION
  Report Type: Spontaneous
  Country: CA (occurrence: CA)
  Receive Date: 20231018
  Receipt Date: 20240802
  Transmission Date: 20241016
  Serious: Yes (Other)
  Sender: PFIZER
  Company Number: CA-PFIZER INC-PV202300169751

PATIENT
  Age: 81 Year
  Sex: Female
  Weight: 66.3 kg

DRUGS (4)
  1. IBRANCE [Suspect]
     Active Substance: PALBOCICLIB
     Indication: Breast cancer metastatic
     Dosage: 125 MG, DAILY X 21 DAYS
     Route: 048
     Dates: start: 20200916
  2. LETROZOLE [Concomitant]
     Active Substance: LETROZOLE
     Dosage: UNK
     Dates: start: 201009, end: 201511
  3. LETROZOLE [Concomitant]
     Active Substance: LETROZOLE
     Dosage: 2.5 MG, DAILY
     Route: 048
  4. METOCLOPRAMIDE HYDROCHLORIDE [Concomitant]
     Active Substance: METOCLOPRAMIDE HYDROCHLORIDE
     Dosage: 10 MG, Q4-6 H AS NEEDED
     Route: 048

REACTIONS (1)
  - Weight decreased [Recovering/Resolving]

NARRATIVE: CASE EVENT DATE: 20230101
